FAERS Safety Report 22227445 (Version 2)
Quarter: 2023Q2

REPORT INFORMATION
  Report Type: Report from Study
  Country: CA (occurrence: CA)
  Receive Date: 20230419
  Receipt Date: 20230531
  Transmission Date: 20230722
  Serious: Yes (Other)
  Sender: FDA-Public Use
  Company Number: CA-002147023-NVSC2023CA053812

PATIENT
  Age: 83 Year
  Sex: Male

DRUGS (2)
  1. ELTROMBOPAG OLAMINE [Suspect]
     Active Substance: ELTROMBOPAG OLAMINE
     Indication: Immune thrombocytopenia
     Dosage: 50 MG, QD
     Route: 048
     Dates: start: 20230207
  2. ELTROMBOPAG OLAMINE [Suspect]
     Active Substance: ELTROMBOPAG OLAMINE
     Dosage: 50 MG, BIW (EVERY MONDAYS AND THURSDAYS)
     Route: 048

REACTIONS (11)
  - Cerebral artery embolism [Unknown]
  - Transient ischaemic attack [Unknown]
  - Paraesthesia [Unknown]
  - Hypoaesthesia [Unknown]
  - Diplopia [Unknown]
  - Pain in extremity [Unknown]
  - Muscle spasms [Unknown]
  - Arthralgia [Unknown]
  - Fatigue [Unknown]
  - Platelet count increased [Unknown]
  - Inappropriate schedule of product administration [Unknown]
